FAERS Safety Report 25903532 (Version 1)
Quarter: 2025Q4

REPORT INFORMATION
  Report Type: Spontaneous
  Country: EU (occurrence: EU)
  Receive Date: 20251010
  Receipt Date: 20251010
  Transmission Date: 20260118
  Serious: Yes (Other)
  Sender: TEVA
  Company Number: None

PATIENT
  Age: 77 Year
  Sex: Male
  Weight: 74 kg

DRUGS (5)
  1. FLUOROURACIL [Suspect]
     Active Substance: FLUOROURACIL
     Indication: Colon cancer
     Dosage: FOLFIRI Q15 PROTOCOL.?FU 600 MG BOLUS?FU 1800 MG VIA ELASTOMER DURATION 2880 MINUTES
     Route: 042
     Dates: start: 202508
  2. EZETIMIBE\ROSUVASTATIN [Concomitant]
     Active Substance: EZETIMIBE\ROSUVASTATIN
     Indication: Product used for unknown indication
     Route: 048
  3. ELIQUIS [Concomitant]
     Active Substance: APIXABAN
     Indication: Product used for unknown indication
     Route: 048
  4. DEXAMETHASONE [Concomitant]
     Active Substance: DEXAMETHASONE
     Indication: Colon cancer
     Dosage: DEXAMETHASONE 4MG IN 100ML ACCORDING TO CHEMOTHERAPY PROTOCOL
     Route: 042
  5. IRINOTECAN [Concomitant]
     Active Substance: IRINOTECAN
     Indication: Colon cancer
     Dosage: IRINOTECAN 250MG IN 250ML GLUCOSE 5%;08/27
     Route: 042
     Dates: start: 202508

REACTIONS (1)
  - Atrial fibrillation [Recovering/Resolving]

NARRATIVE: CASE EVENT DATE: 20250101
